FAERS Safety Report 9801971 (Version 2)
Quarter: 2018Q3

REPORT INFORMATION
  Report Type: Spontaneous
  Country: IT (occurrence: IT)
  Receive Date: 20140107
  Receipt Date: 20180726
  Transmission Date: 20181010
  Serious: Yes (Hospitalization, Other)
  Sender: FDA-Public Use
  Company Number: PHHY2014IT001037

PATIENT
  Age: 63 Year
  Sex: Female

DRUGS (5)
  1. TRIAZOLAM. [Concomitant]
     Active Substance: TRIAZOLAM
     Indication: PRODUCT USED FOR UNKNOWN INDICATION
     Dosage: 1 DF, (0.25 MG 1 CP EVERY NIGHT)
     Route: 065
  2. PAROXETINE. [Concomitant]
     Active Substance: PAROXETINE
     Indication: PRODUCT USED FOR UNKNOWN INDICATION
     Dosage: 1 DF, (20 MG HALF CP AFTER LUNCH)
     Route: 065
  3. ALPRAZOLAM. [Concomitant]
     Active Substance: ALPRAZOLAM
     Indication: PRODUCT USED FOR UNKNOWN INDICATION
     Dosage: 1 DF, (0.25 MG 1 CP EVERY MORNING)
     Route: 065
  4. OLANZAPINE. [Suspect]
     Active Substance: OLANZAPINE
     Indication: DEPRESSION
     Dosage: 10 MG, QD (PREVIOUSLY TWICE DAILY UNKNOWN DOSE.10MG EVERY NIGHT)
     Route: 065
  5. ARIPIPRAZOLE. [Suspect]
     Active Substance: ARIPIPRAZOLE
     Indication: DEPRESSION
     Dosage: 5 MG, DAILY
     Route: 065

REACTIONS (14)
  - Neuroleptic malignant syndrome [Recovered/Resolved]
  - Dysarthria [Recovering/Resolving]
  - Hypokinesia [Recovering/Resolving]
  - Gait disturbance [Recovering/Resolving]
  - Mutism [Recovering/Resolving]
  - Pneumonia [Recovered/Resolved]
  - Cogwheel rigidity [Recovering/Resolving]
  - Blood creatine phosphokinase increased [Recovering/Resolving]
  - Product use in unapproved indication [Unknown]
  - Musculoskeletal stiffness [Recovering/Resolving]
  - Bradykinesia [Recovering/Resolving]
  - Pyrexia [Recovering/Resolving]
  - Leukocytosis [Recovering/Resolving]
  - Drug interaction [Unknown]
